FAERS Safety Report 8940745 (Version 1)
Quarter: 2012Q4

REPORT INFORMATION
  Report Type: Report from Study
  Country: DE (occurrence: DE)
  Receive Date: 20121203
  Receipt Date: 20121203
  Transmission Date: 20130627
  Serious: Yes (Death)
  Sender: FDA-Public Use
  Company Number: DE-ROCHE-1160454

PATIENT
  Sex: Female
  Weight: 77 kg

DRUGS (1)
  1. PERTUZUMAB [Suspect]
     Indication: BREAST CANCER
     Route: 042
     Dates: start: 20121115, end: 20121115

REACTIONS (1)
  - Disease progression [Fatal]
